FAERS Safety Report 12563682 (Version 1)
Quarter: 2016Q3

REPORT INFORMATION
  Report Type: Spontaneous
  Country: US (occurrence: US)
  Receive Date: 20160716
  Receipt Date: 20160716
  Transmission Date: 20161109
  Serious: No
  Sender: FDA-Public Use
  Company Number: US-BIOGEN-2016BI00262841

PATIENT
  Sex: Female

DRUGS (1)
  1. TYSABRI [Suspect]
     Active Substance: NATALIZUMAB
     Indication: MULTIPLE SCLEROSIS
     Dosage: 68 ML OUT OF 100 ML?INFUSED OVER ONE HOUR
     Route: 065
     Dates: start: 20160527

REACTIONS (5)
  - Pruritus [Unknown]
  - Intentional underdose [Unknown]
  - Chills [Recovered/Resolved]
  - Drug specific antibody present [Not Recovered/Not Resolved]
  - Erythema [Unknown]
